FAERS Safety Report 12935071 (Version 1)
Quarter: 2016Q4

REPORT INFORMATION
  Report Type: Spontaneous
  Country: US (occurrence: US)
  Receive Date: 20161113
  Receipt Date: 20161113
  Transmission Date: 20170207
  Serious: No
  Sender: FDA-Public Use
  Company Number: US-TAIHO ONCOLOGY INC-EU-2016-02389

PATIENT
  Age: 65 Year
  Sex: Male

DRUGS (9)
  1. ONDANSETRON [Concomitant]
     Active Substance: ONDANSETRON
  2. PROMETHAZINE [Concomitant]
     Active Substance: PROMETHAZINE\PROMETHAZINE HYDROCHLORIDE
  3. TAMSULOSIN [Concomitant]
     Active Substance: TAMSULOSIN
  4. LONSURF [Suspect]
     Active Substance: TIPIRACIL HYDROCHLORIDE\TRIFLURIDINE
     Indication: COLORECTAL CANCER
     Route: 048
     Dates: start: 20160520
  5. NITROFURANTOIN. [Suspect]
     Active Substance: NITROFURANTOIN
  6. LEVOFLOXACIN. [Concomitant]
     Active Substance: LEVOFLOXACIN
  7. FERROUS SULFATE. [Concomitant]
     Active Substance: FERROUS SULFATE
  8. VENLAFAXINE [Concomitant]
     Active Substance: VENLAFAXINE HYDROCHLORIDE
  9. METOPROLOL. [Concomitant]
     Active Substance: METOPROLOL

REACTIONS (3)
  - Asthenia [Unknown]
  - Fatigue [Not Recovered/Not Resolved]
  - Vomiting [Unknown]

NARRATIVE: CASE EVENT DATE: 201608
